FAERS Safety Report 9213379 (Version 2)
Quarter: 2013Q2

REPORT INFORMATION
  Report Type: Spontaneous
  Country: US (occurrence: US)
  Receive Date: 20130405
  Receipt Date: 20130507
  Transmission Date: 20140414
  Serious: Yes (Hospitalization, Other)
  Sender: FDA-Public Use
  Company Number: PHEH2013US007682

PATIENT
  Age: 67 Year
  Sex: Female
  Weight: 95 kg

DRUGS (10)
  1. RECLAST [Suspect]
     Indication: OSTEOPOROSIS
     Dosage: 5 MG/100CC
     Route: 042
     Dates: start: 20130304
  2. ZOLPIDEM [Concomitant]
     Dosage: 10 MG, UNK
     Route: 048
  3. METOPROLOL [Concomitant]
     Dosage: 50 MG, QD
     Route: 048
  4. HYDRALAZINE [Concomitant]
     Dosage: 25 MG, BID
     Route: 048
  5. SIMVASTATIN [Concomitant]
     Dosage: 40 MG, QD
  6. INSULIN [Concomitant]
  7. IMMUNOSUPPRESSANTS [Concomitant]
     Dosage: UNK UKN, UNK
  8. ACE INHIBITORS [Concomitant]
     Dosage: UNK UKN, UNK
  9. DIURETICS [Concomitant]
     Dosage: UNK UKN, UNK
  10. VITAMIN D3 [Concomitant]
     Dosage: 50000 IU (TWICE WEEK)

REACTIONS (10)
  - Renal failure acute [Recovering/Resolving]
  - Urine output decreased [Unknown]
  - Oedema [Unknown]
  - Flank pain [Unknown]
  - Abdominal pain [Unknown]
  - Hypotension [Unknown]
  - Diarrhoea [Unknown]
  - Pruritus [Unknown]
  - Headache [Unknown]
  - Arthralgia [Unknown]
